FAERS Safety Report 7001006-9 (Version None)
Quarter: 2010Q3

REPORT INFORMATION
  Report Type: 
  Country: None (occurrence: None)
  Receive Date: 20100920
  Receipt Date: 20100615
  Transmission Date: 20110219
  Serious: Yes (Hospitalization)
  Sender: FDA-Public Use
  Company Number: US-ASTRAZENECA-2010SE28696

PATIENT
  Sex: Female
  Weight: 106.2 kg

DRUGS (6)
  1. SEROQUEL [Suspect]
     Dosage: 300 MG IN AM, 300MG 2 TAB AT HS
     Route: 048
     Dates: start: 20080723
  2. VERAPAMIL [Concomitant]
     Route: 048
     Dates: start: 20080723
  3. XANAX [Concomitant]
     Route: 048
     Dates: start: 20080723
  4. ZANTAC [Concomitant]
     Route: 048
     Dates: start: 20080723
  5. EFFEXOR XR [Concomitant]
     Route: 048
     Dates: start: 20080723
  6. LEXAPRO [Concomitant]
     Route: 048
     Dates: start: 20080723

REACTIONS (6)
  - CONSTIPATION [None]
  - DIABETIC KETOACIDOSIS [None]
  - ESSENTIAL HYPERTENSION [None]
  - GASTROOESOPHAGEAL REFLUX DISEASE [None]
  - HYPERGLYCAEMIA [None]
  - INSULIN-REQUIRING TYPE 2 DIABETES MELLITUS [None]
